FAERS Safety Report 8007899-0 (Version None)
Quarter: 2011Q4

REPORT INFORMATION
  Report Type: 
  Country: None (occurrence: None)
  Receive Date: 20111206
  Receipt Date: 20111201
  Transmission Date: 20120403
  Serious: Yes (Hospitalization, Other)
  Sender: FDA-Public Use
  Company Number: 2011028317

PATIENT
  Sex: Female
  Weight: 107.9561 kg

DRUGS (20)
  1. HIZENTRA [Suspect]
  2. HIZENTRA [Suspect]
  3. CYMBALTA [Concomitant]
  4. NEURONTIN [Concomitant]
  5. VERAPAMIL [Concomitant]
  6. PROMETHAZINE [Concomitant]
  7. LOPRESSOR [Concomitant]
  8. POTASSIUM CHLORIDE [Concomitant]
  9. AMBIEN [Concomitant]
  10. ACETAMINOPHEN [Concomitant]
  11. HIZENTRA [Suspect]
  12. HIZENTRA [Suspect]
  13. SPIRONOLACTONE [Concomitant]
  14. LASIX [Concomitant]
  15. HIZENTRA [Suspect]
  16. LORCET-HD [Concomitant]
  17. HIZENTRA [Suspect]
     Indication: IMMUNODEFICIENCY COMMON VARIABLE
     Dosage: SEE IMAGE
     Route: 058
     Dates: start: 20110420
  18. HIZENTRA [Suspect]
     Indication: IMMUNODEFICIENCY COMMON VARIABLE
     Dosage: SEE IMAGE
     Route: 058
     Dates: start: 20110414
  19. HYDROXYZINE [Concomitant]
  20. FLEXERIL [Concomitant]

REACTIONS (7)
  - TRANSIENT ISCHAEMIC ATTACK [None]
  - ERYTHEMA [None]
  - SKIN DISCOLOURATION [None]
  - FATIGUE [None]
  - URINARY TRACT INFECTION [None]
  - CELLULITIS [None]
  - PAIN [None]
